FAERS Safety Report 7595335-8 (Version None)
Quarter: 2011Q3

REPORT INFORMATION
  Report Type: 
  Country: None (occurrence: None)
  Receive Date: 20110707
  Receipt Date: 20110629
  Transmission Date: 20111222
  Serious: Yes (Death, Hospitalization, Other)
  Sender: FDA-Public Use
  Company Number: GB-TEVA-285438ISR

PATIENT
  Sex: Male
  Weight: 15.9 kg

DRUGS (7)
  1. METHOTREXATE [Suspect]
     Dosage: 6.8 MILLIGRAM;
     Route: 042
     Dates: start: 20110119, end: 20110119
  2. BUSULFAN [Suspect]
     Indication: BONE MARROW TRANSPLANT
     Dosage: 64 MILLIGRAM; 224MG OVER 14 DOSES
     Route: 048
     Dates: start: 20110103, end: 20110106
  3. THIOTEPA [Concomitant]
  4. ALEMTUZUMAB [Concomitant]
  5. CYCLOSPORINE [Concomitant]
     Indication: GRAFT VERSUS HOST DISEASE
  6. METHOTREXATE [Suspect]
     Indication: GRAFT VERSUS HOST DISEASE
     Dosage: 6.8 MILLIGRAM;
     Route: 042
     Dates: start: 20110116, end: 20110116
  7. CYCLOPHOSPHAMIDE [Concomitant]
     Indication: BONE MARROW TRANSPLANT
     Dosage: 795 MILLIGRAM;
     Route: 042
     Dates: start: 20110107, end: 20110110

REACTIONS (3)
  - VENOOCCLUSIVE DISEASE [None]
  - LUNG CONSOLIDATION [None]
  - CYTOMEGALOVIRUS INFECTION [None]
